FAERS Safety Report 4773410-0 (Version None)
Quarter: 2005Q3

REPORT INFORMATION
  Report Type: 
  Country: None (occurrence: None)
  Receive Date: 20050920
  Receipt Date: 20050908
  Transmission Date: 20060218
  Serious: Yes (Death)
  Sender: FDA-Public Use
  Company Number: US-JNJFOC-20050800350

PATIENT
  Age: 55 Year
  Sex: Male

DRUGS (1)
  1. REMICADE [Suspect]
     Indication: CROHN'S DISEASE

REACTIONS (5)
  - CENTRAL LINE INFECTION [None]
  - HEPATITIS [None]
  - MYELOID LEUKAEMIA [None]
  - STAPHYLOCOCCAL SEPSIS [None]
  - TUBERCULOSIS [None]
